FAERS Safety Report 25895797 (Version 1)
Quarter: 2025Q4

REPORT INFORMATION
  Report Type: Spontaneous
  Country: EG (occurrence: EG)
  Receive Date: 20251008
  Receipt Date: 20251008
  Transmission Date: 20260118
  Serious: Yes (Other)
  Sender: HIKMA
  Company Number: EG-HIKMA PHARMACEUTICALS-EG-H14001-25-10884

PATIENT
  Age: 67 Year
  Sex: Female
  Weight: 50 kg

DRUGS (2)
  1. GEMCITABINE HYDROCHLORIDE [Suspect]
     Active Substance: GEMCITABINE HYDROCHLORIDE
     Indication: Hepatic cancer
     Dosage: 1120 MILLIGRAM, EVERY 21 DAYS (CYCLE 3, DAY 1)
     Route: 041
     Dates: start: 20250714
  2. OXALIPLATIN [Suspect]
     Active Substance: OXALIPLATIN
     Indication: Hepatic cancer
     Dosage: 140 MILLIGRAM, EVERY 21 DAY (CYCLE 3, DAY 1)
     Route: 041
     Dates: start: 20250714

REACTIONS (3)
  - Arthralgia [Not Recovered/Not Resolved]
  - Vomiting [Recovered/Resolved]
  - Anaemia [Recovered/Resolved]

NARRATIVE: CASE EVENT DATE: 20250715
